FAERS Safety Report 9892395 (Version 1)
Quarter: 2014Q1

REPORT INFORMATION
  Report Type: Spontaneous
  Country: CO (occurrence: CO)
  Receive Date: 20140212
  Receipt Date: 20140212
  Transmission Date: 20141002
  Serious: Yes (Other)
  Sender: FDA-Public Use
  Company Number: CO-PFIZER INC-2014038700

PATIENT
  Age: 62 Year
  Sex: Female

DRUGS (1)
  1. LIPITOR [Suspect]
     Dosage: 20 MG, ONCE DAILY
     Route: 048
     Dates: start: 2005, end: 201309

REACTIONS (1)
  - Spinal disorder [Not Recovered/Not Resolved]
